FAERS Safety Report 8045067-7 (Version None)
Quarter: 2012Q1

REPORT INFORMATION
  Report Type: 
  Country: None (occurrence: None)
  Receive Date: 20120113
  Receipt Date: 20120107
  Transmission Date: 20120608
  Serious: Yes (Death, Hospitalization, Other)
  Sender: FDA-Public Use
  Company Number: PHHY2011NL107987

PATIENT
  Sex: Female

DRUGS (2)
  1. ZOMETA [Suspect]
     Dosage: 4 MG, ONCE EVERY 42 DAYS , 4MG/100ML NACL IN 20 MIN
     Route: 042
     Dates: start: 20111209
  2. ZOMETA [Suspect]
     Indication: METASTASES TO BREAST
     Dosage: 4 MG, ONCE EVERY 42 DAYS , 4MG/100ML NACL IN 20 MIN
     Route: 042
     Dates: start: 20090409

REACTIONS (4)
  - NEOPLASM PROGRESSION [None]
  - PLEURAL EFFUSION [None]
  - NEOPLASM MALIGNANT [None]
  - DYSPNOEA [None]
